FAERS Safety Report 6434224-9 (Version None)
Quarter: 2009Q4

REPORT INFORMATION
  Report Type: 
  Country: None (occurrence: None)
  Receive Date: 20091110
  Receipt Date: 20090427
  Transmission Date: 20100525
  Serious: No
  Sender: FDA-Public Use
  Company Number: US-ASTRAZENECA-2009SE08992

PATIENT
  Sex: Female

DRUGS (10)
  1. PRILOSEC OTC [Suspect]
     Dosage: 1 TABLET, 1 /DAY FOR 2 DAYS
     Route: 048
     Dates: start: 20090424, end: 20090425
  2. SERTOLINE [Concomitant]
     Dosage: UNKNOWN
  3. OMEPRAZOLE [Concomitant]
     Dosage: UNKNOWN
  4. SEROQUEL [Concomitant]
     Dosage: UNKNOWN
  5. BACLOFEN [Concomitant]
     Dosage: UNKNOWN
  6. CARVEDILOL [Concomitant]
     Dosage: UNKNOWN
  7. LORATADINE [Concomitant]
     Dosage: UNKNOWN
  8. SINGULAIR [Concomitant]
     Dosage: UNKNOWN
  9. ADVAIR DISKUS 100/50 [Concomitant]
     Dosage: UNKNOWN
  10. IPRATROPIUM [Concomitant]
     Dosage: UNKNOWN

REACTIONS (2)
  - JOINT SWELLING [None]
  - OEDEMA PERIPHERAL [None]
